FAERS Safety Report 8119561-4 (Version None)
Quarter: 2012Q1

REPORT INFORMATION
  Report Type: 
  Country: None (occurrence: None)
  Receive Date: 20120207
  Receipt Date: 20120202
  Transmission Date: 20120608
  Serious: Yes (Death)
  Sender: FDA-Public Use
  Company Number: PHHY2012MX009167

PATIENT
  Sex: Male

DRUGS (3)
  1. KEPPRA [Concomitant]
     Indication: EPILEPSY
     Dosage: 3 DF, UNK
     Dates: start: 20110801
  2. TRILEPTAL [Suspect]
     Dosage: 300 MG, UNK
     Dates: start: 20110801
  3. TRILEPTAL [Suspect]
     Indication: EPILEPSY
     Dosage: (6G/100 ML) 2 TABLETS PER DAY
     Dates: start: 20110403

REACTIONS (2)
  - CONVULSION [None]
  - CARDIAC ARREST [None]
